FAERS Safety Report 7958343-0 (Version None)
Quarter: 2011Q4

REPORT INFORMATION
  Report Type: 
  Country: None (occurrence: None)
  Receive Date: 20111205
  Receipt Date: 20111128
  Transmission Date: 20120403
  Serious: Yes (Other)
  Sender: FDA-Public Use
  Company Number: US-AMGEN-USASP2011062765

PATIENT
  Sex: Female

DRUGS (3)
  1. PROLIA [Suspect]
     Indication: PRODUCT USED FOR UNKNOWN INDICATION
     Dosage: UNK
  2. CALCIUM GLUCONATE [Concomitant]
     Route: 042
  3. CALCITRIOL [Concomitant]

REACTIONS (2)
  - BLOOD PARATHYROID HORMONE INCREASED [None]
  - HYPOCALCAEMIA [None]
